FAERS Safety Report 16196365 (Version 1)
Quarter: 2019Q2

REPORT INFORMATION
  Report Type: Spontaneous
  Country: US (occurrence: US)
  Receive Date: 20190309
  Receipt Date: 20190309
  Transmission Date: 20190711
  Serious: Yes (Death, Hospitalization)
  Sender: FDA-Public Use
  Company Number: None

PATIENT
  Age: 22 Year
  Sex: Female
  Weight: 55.5 kg

DRUGS (5)
  1. PEG/L-ASPARAGINASE [Suspect]
     Active Substance: PEGASPARGASE
     Dosage: ?          OTHER DOSE:7500 UNIT;?
     Dates: end: 20151223
  2. METHOTREXATE. [Suspect]
     Active Substance: METHOTREXATE
     Dates: end: 20151203
  3. VINCRISTINE SULFATE. [Suspect]
     Active Substance: VINCRISTINE SULFATE
     Dates: end: 20151230
  4. MITOXANTRONE HYDROCHLORIDE. [Suspect]
     Active Substance: MITOXANTRONE HYDROCHLORIDE
     Dates: end: 20151205
  5. DEXAMETHASONE. [Suspect]
     Active Substance: DEXAMETHASONE
     Dates: end: 20151227

REACTIONS (14)
  - Citrobacter bacteraemia [None]
  - Skin lesion [None]
  - International normalised ratio increased [None]
  - Confusional state [None]
  - Atrial fibrillation [None]
  - Disseminated intravascular coagulation [None]
  - Ammonia increased [None]
  - Septic shock [None]
  - Cephalin flocculation abnormal [None]
  - Delirium [None]
  - Bacillus bacteraemia [None]
  - Cardiac failure [None]
  - Gastrointestinal haemorrhage [None]
  - Hepatic enzyme increased [None]

NARRATIVE: CASE EVENT DATE: 20160109
